FAERS Safety Report 5227816-6 (Version None)
Quarter: 2007Q1

REPORT INFORMATION
  Report Type: 
  Country: None (occurrence: None)
  Receive Date: 20070202
  Receipt Date: 20070123
  Transmission Date: 20070707
  Serious: Yes (Other)
  Sender: FDA-Public Use
  Company Number: US-PFIZER INC-2007006399

PATIENT

DRUGS (1)
  1. LYRICA [Suspect]
     Dosage: DAILY DOSE:100MG-FREQ:DAILY

REACTIONS (1)
  - CONVULSION [None]
